FAERS Safety Report 4791807-X (Version None)
Quarter: 2005Q4

REPORT INFORMATION
  Report Type: 
  Country: None (occurrence: None)
  Receive Date: 20051007
  Receipt Date: 20051006
  Transmission Date: 20060501
  Serious: Yes (Hospitalization)
  Sender: FDA-Public Use
  Company Number: FR-SANOFI-SYNTHELABO-F01200502066

PATIENT
  Sex: Male

DRUGS (3)
  1. OXALIPLATIN [Suspect]
     Indication: COLORECTAL CANCER METASTATIC
     Route: 041
  2. BEVACIZUMAB [Suspect]
     Route: 042
  3. CAPECITABINE [Suspect]
     Dosage: 3237 MG GIVEN IN TWO DOSES DAILY FROM DAYS ONE TO SEVEN OF EVERY TWO WEEKS

REACTIONS (2)
  - ACUTE ABDOMEN [None]
  - PANCREATITIS ACUTE [None]
